FAERS Safety Report 12629445 (Version 4)
Quarter: 2016Q4

REPORT INFORMATION
  Report Type: Spontaneous
  Country: US (occurrence: US)
  Receive Date: 20160808
  Receipt Date: 20161220
  Transmission Date: 20170207
  Serious: Yes (Hospitalization, Other)
  Sender: FDA-Public Use
  Company Number: US-TEVA-681239USA

PATIENT
  Age: 65 Year
  Sex: Male
  Weight: 84.44 kg

DRUGS (2)
  1. SYNRIBO [Suspect]
     Active Substance: OMACETAXINE MEPESUCCINATE
     Dosage: HOME ADMINISTRATION MAINTENANCE CYCLE
     Dates: start: 20161111, end: 20161206
  2. SYNRIBO [Suspect]
     Active Substance: OMACETAXINE MEPESUCCINATE
     Indication: CHRONIC MYELOID LEUKAEMIA
     Dosage: 2.4 MG (IN 0.69 ML) TWICE DAILY FOR 7 CONSECUTIVE DAYS
     Route: 065
     Dates: start: 201604, end: 20160728

REACTIONS (5)
  - Hypotension [Unknown]
  - Pneumonia [Not Recovered/Not Resolved]
  - Blood count abnormal [Unknown]
  - Blood count abnormal [Recovered/Resolved]
  - Incorrect dose administered [Unknown]

NARRATIVE: CASE EVENT DATE: 201607
